FAERS Safety Report 20611945 (Version 1)
Quarter: 2022Q1

REPORT INFORMATION
  Report Type: Spontaneous
  Country: JP (occurrence: JP)
  Receive Date: 20220318
  Receipt Date: 20220318
  Transmission Date: 20220423
  Serious: Yes (Hospitalization, Other)
  Sender: FDA-Public Use
  Company Number: JP-Eisai-202113058_WF_P_1

PATIENT
  Age: 85 Year
  Sex: Female
  Weight: 54 kg

DRUGS (12)
  1. LUNESTA [Suspect]
     Active Substance: ESZOPICLONE
     Dosage: 2 MG, QD
     Route: 048
  2. WARFARIN [Suspect]
     Active Substance: WARFARIN
     Indication: Atrial fibrillation
     Dosage: UNK (DOSE UNKNOWN)
     Route: 048
  3. BETAHISTINE MESILATE [Concomitant]
     Active Substance: BETAHISTINE MESILATE
     Dosage: 6 MG, TID
     Route: 048
  4. AMLODIPINE [Concomitant]
     Active Substance: AMLODIPINE BESYLATE
     Dosage: 5 MG, BID
     Route: 048
  5. BISOPROLOL FUMARATE [Concomitant]
     Active Substance: BISOPROLOL FUMARATE
     Dosage: 2.5 MG, QD
     Route: 048
  6. AZILSARTAN KAMEDOXOMIL [Concomitant]
     Active Substance: AZILSARTAN KAMEDOXOMIL
     Dosage: 10 MG, QD
     Route: 048
  7. NATEGLINIDE [Concomitant]
     Active Substance: NATEGLINIDE
     Dosage: 30 MG, TID
     Route: 048
  8. FAMOTIDINE [Concomitant]
     Active Substance: FAMOTIDINE
     Dosage: 20 MG, QD
     Route: 048
  9. PANTETHINE [Concomitant]
     Active Substance: PANTETHINE
     Dosage: 100 MG, TID
     Route: 048
  10. TENELIGLIPTIN HYDROBROMIDE HYDRATE [Concomitant]
     Active Substance: TENELIGLIPTIN HYDROBROMIDE HYDRATE
     Dosage: 20 MG, QD
     Route: 048
  11. TIAPRIDE [Concomitant]
     Active Substance: TIAPRIDE
     Dosage: 25 MG, QD
     Route: 048
  12. BROTIZOLAM [Concomitant]
     Active Substance: BROTIZOLAM
     Dosage: 0.25 MG, QD
     Route: 048

REACTIONS (3)
  - Diverticulum intestinal haemorrhagic [Recovering/Resolving]
  - Thalamus haemorrhage [Recovering/Resolving]
  - Somnolence [Recovering/Resolving]
